FAERS Safety Report 20450549 (Version 1)
Quarter: 2022Q1

REPORT INFORMATION
  Report Type: Spontaneous
  Country: US (occurrence: None)
  Receive Date: 20220209
  Receipt Date: 20220209
  Transmission Date: 20220423
  Serious: Yes (Death)
  Sender: FDA-Public Use
  Company Number: None

PATIENT
  Sex: Female

DRUGS (1)
  1. BOTOX [Suspect]
     Active Substance: ONABOTULINUMTOXINA
     Indication: Migraine
     Dosage: 100 UNIT INJECTON??INJECT 155 UNITS IN THE MUSCLE OF THE HEAD AND NECK BY A ROUTINE INJECTION PARADI
     Route: 030
     Dates: start: 20210611

REACTIONS (1)
  - Death [None]
